FAERS Safety Report 5678432-3 (Version None)
Quarter: 2008Q1

REPORT INFORMATION
  Report Type: 
  Country: None (occurrence: None)
  Receive Date: 20080320
  Receipt Date: 20080313
  Transmission Date: 20080703
  Serious: Yes (Hospitalization)
  Sender: FDA-Public Use
  Company Number: 2008-01834

PATIENT
  Age: 25 Year
  Sex: Male

DRUGS (10)
  1. CLARITHROMYCIN EXTENDED RELEASE [Suspect]
     Dates: start: 20070101
  2. IBUPROFEN [Suspect]
     Indication: PAIN
     Dosage: ORAL
     Route: 048
     Dates: start: 20070101
  3. SULFAMETHOXAZOLE AND TRIMETHOPRIM [Suspect]
     Indication: PNEUMOCYSTIS JIROVECI PNEUMONIA
     Dates: start: 20070101
  4. CIPROFLOXACIN [Suspect]
     Dates: start: 20070101
  5. TENOFOVIR DISOPROXIL FUMARATE [Suspect]
     Indication: ANTIRETROVIRAL THERAPY
     Dates: start: 20070101
  6. LAMIVUDINE [Suspect]
     Indication: ANTIRETROVIRAL THERAPY
     Dates: start: 20070101
  7. NEVIRAPINE [Suspect]
     Indication: ANTIRETROVIRAL THERAPY
     Dates: start: 20070101
  8. COMBIVIR [Suspect]
     Indication: ANTIRETROVIRAL THERAPY
     Dates: start: 20070101
  9. EFAVIRENZ [Suspect]
     Indication: ANTIRETROVIRAL THERAPY
     Dates: start: 20070101
  10. LOPERAMIDE [Concomitant]

REACTIONS (2)
  - SEPSIS [None]
  - VANISHING BILE DUCT SYNDROME [None]
